FAERS Safety Report 11749072 (Version 4)
Quarter: 2016Q1

REPORT INFORMATION
  Report Type: Spontaneous
  Country: US (occurrence: US)
  Receive Date: 20151118
  Receipt Date: 20160111
  Transmission Date: 20160525
  Serious: Yes (Other)
  Sender: FDA-Public Use
  Company Number: US-ROCHE-1662424

PATIENT
  Sex: Male
  Weight: 103.06 kg

DRUGS (1)
  1. ESBRIET [Suspect]
     Active Substance: PIRFENIDONE
     Indication: IDIOPATHIC PULMONARY FIBROSIS
     Dosage: 3 CAPSULES THRICE DAILY
     Route: 048
     Dates: start: 20150625

REACTIONS (12)
  - Dyspnoea [Unknown]
  - Amnesia [Unknown]
  - Visual impairment [Unknown]
  - Drug ineffective [Unknown]
  - Pharyngeal oedema [Unknown]
  - Muscle twitching [Unknown]
  - Weight decreased [Unknown]
  - Lacrimation increased [Unknown]
  - Alopecia [Unknown]
  - Productive cough [Unknown]
  - Fatigue [Unknown]
  - Asthenia [Unknown]
